FAERS Safety Report 9240531 (Version 2)
Quarter: 2013Q2

REPORT INFORMATION
  Report Type: Spontaneous
  Country: US (occurrence: None)
  Receive Date: 20130410
  Receipt Date: 20130416
  Transmission Date: 20140414
  Serious: Yes (Other)
  Sender: FDA-Public Use
  Company Number: 2013035338

PATIENT
  Age: 72 Year
  Sex: Female

DRUGS (1)
  1. PRIVIGEN [Suspect]
     Indication: IMMUNODEFICIENCY COMMON VARIABLE
     Dosage: 30 G 1X/4 WEEKS, TAKING SINCE 2009 IV
     Route: 042
     Dates: start: 20130308, end: 20130308

REACTIONS (1)
  - Hepatic cyst ruptured [None]
